FAERS Safety Report 10477323 (Version 1)
Quarter: 2014Q3

REPORT INFORMATION
  Report Type: Spontaneous
  Country: US (occurrence: FR)
  Receive Date: 20140926
  Receipt Date: 20140926
  Transmission Date: 20150326
  Serious: Yes (Death, Hospitalization)
  Sender: FDA-Public Use
  Company Number: 2014SP005488

PATIENT
  Age: 63 Year
  Sex: Female

DRUGS (17)
  1. HALOPERIDOL. [Concomitant]
     Active Substance: HALOPERIDOL
  2. FLUOROURACIL. [Suspect]
     Active Substance: FLUOROURACIL
     Indication: RECTAL CANCER METASTATIC
     Route: 042
     Dates: start: 20140818, end: 20140820
  3. SKENAN [Concomitant]
     Active Substance: MORPHINE SULFATE
     Indication: FIBROMYALGIA
  4. OXYCONTIN [Concomitant]
     Active Substance: OXYCODONE HYDROCHLORIDE
     Dates: start: 20140813
  5. OXYNORM [Concomitant]
     Active Substance: OXYCODONE HYDROCHLORIDE
  6. PREDNISONE. [Concomitant]
     Active Substance: PREDNISONE
  7. FOLINIC ACID [Concomitant]
     Active Substance: LEUCOVORIN
     Indication: RECTAL CANCER METASTATIC
  8. METOCLOPRAMIDE. [Concomitant]
     Active Substance: METOCLOPRAMIDE
  9. LAROXYL [Concomitant]
     Active Substance: AMITRIPTYLINE
  10. ABSTRAL [Concomitant]
     Active Substance: FENTANYL CITRATE
     Dates: start: 20140813
  11. MORPHINE [Concomitant]
     Active Substance: MORPHINE
     Indication: FIBROMYALGIA
  12. OXYCONTIN [Concomitant]
     Active Substance: OXYCODONE HYDROCHLORIDE
  13. ABSTRAL [Concomitant]
     Active Substance: FENTANYL CITRATE
  14. ZOLPIDEM TARTRATE. [Concomitant]
     Active Substance: ZOLPIDEM TARTRATE
  15. ALUMINIUM MAGNESIUM SILICATE [Concomitant]
     Active Substance: MAGNESIUM ALUMINUM SILICATE
  16. ACTISKENAN [Concomitant]
     Active Substance: MORPHINE SULFATE
     Indication: FIBROMYALGIA
  17. PHLOROGLUCINOL [Concomitant]
     Active Substance: PHLOROGLUCINOL

REACTIONS (6)
  - Depressed level of consciousness [Unknown]
  - Hypotension [Unknown]
  - Myocardial necrosis [Fatal]
  - Dyspnoea [Unknown]
  - Septic shock [Fatal]
  - Hyperthermia [Unknown]

NARRATIVE: CASE EVENT DATE: 20140827
